FAERS Safety Report 6102577-7 (Version None)
Quarter: 2009Q1

REPORT INFORMATION
  Report Type: 
  Country: None (occurrence: None)
  Receive Date: 20090304
  Receipt Date: 20080924
  Transmission Date: 20090719
  Serious: No
  Sender: FDA-Public Use
  Company Number: A0746162A

PATIENT
  Age: 67 Year
  Sex: Male
  Weight: 114.5 kg

DRUGS (5)
  1. REQUIP [Suspect]
     Indication: PARKINSON'S DISEASE
     Dosage: 3MG THREE TIMES PER DAY
     Route: 048
     Dates: start: 20061107, end: 20061206
  2. ASPIRIN [Concomitant]
     Dosage: 162MG PER DAY
     Route: 048
  3. ALLEGRA [Concomitant]
     Dosage: 180MG PER DAY
     Route: 048
  4. LEVOTHYROXINE SODIUM [Concomitant]
     Dosage: .75MG PER DAY
     Route: 048
  5. SERTRALINE [Concomitant]
     Dosage: 100MG PER DAY
     Route: 048
     Dates: start: 20051201

REACTIONS (1)
  - DYSPNOEA [None]
